FAERS Safety Report 6511014-X (Version None)
Quarter: 2009Q4

REPORT INFORMATION
  Report Type: 
  Country: None (occurrence: None)
  Receive Date: 20091222
  Receipt Date: 20090216
  Transmission Date: 20100525
  Serious: No
  Sender: FDA-Public Use
  Company Number: US-ASTRAZENECA-2009UW04351

PATIENT
  Age: 84 Year
  Sex: Female
  Weight: 88.9 kg

DRUGS (7)
  1. CRESTOR [Suspect]
     Indication: HYPERCHOLESTEROLAEMIA
     Route: 048
  2. HYDROCHLOROTHIAZIDE [Concomitant]
     Indication: HYPERTENSION
  3. PLAVIX [Concomitant]
  4. LANOXIN [Concomitant]
  5. METOPROLOL SUCCINATE [Concomitant]
  6. LISINOPRIL [Concomitant]
  7. ASPIRIN [Concomitant]

REACTIONS (1)
  - URINARY INCONTINENCE [None]
